FAERS Safety Report 5880366-6 (Version None)
Quarter: 2008Q3

REPORT INFORMATION
  Report Type: 
  Country: None (occurrence: None)
  Receive Date: 20080912
  Receipt Date: 20080602
  Transmission Date: 20090109
  Serious: No
  Sender: FDA-Public Use
  Company Number: US-ABBOTT-07P-163-0369284-00

PATIENT
  Sex: Male
  Weight: 41.314 kg

DRUGS (7)
  1. HUMIRA [Suspect]
     Indication: CROHN'S DISEASE
     Route: 058
     Dates: start: 20060922
  2. PENTASA [Concomitant]
     Indication: CROHN'S DISEASE
     Route: 048
  3. MULTI-VITAMIN [Concomitant]
     Indication: SUPPLEMENTATION THERAPY
     Route: 048
  4. IRON [Concomitant]
     Indication: SUPPLEMENTATION THERAPY
     Route: 048
  5. PROTEIN SUPPLEMENT OTC [Concomitant]
     Indication: SUPPLEMENTATION THERAPY
     Route: 048
  6. FOLIC ACID [Concomitant]
     Indication: DRUG USE FOR UNKNOWN INDICATION
     Route: 048
  7. INHALER [Concomitant]
     Indication: ASTHMA
     Route: 055
     Dates: start: 20070101, end: 20070101

REACTIONS (10)
  - ABDOMINAL PAIN UPPER [None]
  - ASTHMA EXERCISE INDUCED [None]
  - CHRONIC SINUSITIS [None]
  - FATIGUE [None]
  - INJECTION SITE ERYTHEMA [None]
  - INJECTION SITE IRRITATION [None]
  - INJECTION SITE PAIN [None]
  - INJECTION SITE REACTION [None]
  - NAUSEA [None]
  - PALLOR [None]
